APPROVED DRUG PRODUCT: ESOMEPRAZOLE MAGNESIUM
Active Ingredient: ESOMEPRAZOLE MAGNESIUM
Strength: EQ 20MG BASE
Dosage Form/Route: TABLET, DELAYED RELEASE;ORAL
Application: A212088 | Product #001
Applicant: MYLAN PHARMACEUTICALS INC
Approved: Jun 25, 2020 | RLD: No | RS: No | Type: OTC